FAERS Safety Report 4333001-2 (Version None)
Quarter: 2004Q1

REPORT INFORMATION
  Report Type: 
  Country: None (occurrence: None)
  Receive Date: 20040330
  Receipt Date: 20040318
  Transmission Date: 20041129
  Serious: Yes (Hospitalization, Other)
  Sender: FDA-Public Use
  Company Number: USA-2004-0013891

PATIENT
  Age: 54 Year
  Sex: Male

DRUGS (4)
  1. OXYCONTIN [Suspect]
     Indication: PAIN
     Dosage: 100 MG, Q12H, ORAL
     Route: 048
  2. METHADONE HCL [Concomitant]
  3. HYDREA [Concomitant]
  4. FOLIC ACID [Concomitant]

REACTIONS (5)
  - ABNORMAL BEHAVIOUR [None]
  - DRUG ABUSER [None]
  - RESPIRATORY DEPRESSION [None]
  - SICKLE CELL ANAEMIA WITH CRISIS [None]
  - STUPOR [None]
